FAERS Safety Report 8629297 (Version 3)
Quarter: 2013Q4

REPORT INFORMATION
  Report Type: Spontaneous
  Country: US (occurrence: US)
  Receive Date: 20120621
  Receipt Date: 20131031
  Transmission Date: 20140711
  Serious: Yes (Hospitalization)
  Sender: FDA-Public Use
  Company Number: US-009507513-1206USA02876

PATIENT
  Age: 81 Year
  Sex: Female

DRUGS (3)
  1. INVANZ [Suspect]
     Indication: SINUSITIS
     Dosage: 1 G, QD
     Route: 041
  2. INVANZ [Suspect]
     Indication: NEOPLASM
  3. TYLENOL [Concomitant]
     Indication: PAIN

REACTIONS (3)
  - Fall [Recovered/Resolved]
  - Hallucination, visual [Recovered/Resolved]
  - Hallucination, auditory [Recovered/Resolved]
